FAERS Safety Report 8054163-X (Version None)
Quarter: 2012Q1

REPORT INFORMATION
  Report Type: 
  Country: None (occurrence: None)
  Receive Date: 20120118
  Receipt Date: 20120113
  Transmission Date: 20120608
  Serious: Yes (Hospitalization)
  Sender: FDA-Public Use
  Company Number: ES-BRISTOL-MYERS SQUIBB COMPANY-16309239

PATIENT
  Age: 83 Year
  Sex: Male

DRUGS (9)
  1. SPIRIVA [Concomitant]
     Dates: start: 20110822
  2. BELATACEPT [Suspect]
     Indication: RENAL TRANSPLANT
     Route: 042
     Dates: start: 20070217
  3. FUROSEMIDE [Concomitant]
     Dates: start: 20081219
  4. NORVASC [Concomitant]
     Dates: start: 20091020
  5. PREDNISONE [Suspect]
     Indication: RENAL TRANSPLANT
     Dates: start: 20090922
  6. FOSAMAX [Concomitant]
     Dates: start: 20071211
  7. GABAPENTIN [Concomitant]
     Dates: start: 20100505
  8. MYCOPHENOLATE MOFETIL [Suspect]
     Indication: RENAL TRANSPLANT
     Dates: start: 20081028
  9. ZOCOR [Concomitant]
     Dates: start: 20110727

REACTIONS (3)
  - CARDIAC FAILURE [None]
  - RESPIRATORY TRACT INFECTION [None]
  - PNEUMONIA [None]
